FAERS Safety Report 4407325-4 (Version None)
Quarter: 2004Q3

REPORT INFORMATION
  Report Type: 
  Country: None (occurrence: None)
  Receive Date: 20040721
  Receipt Date: 20040714
  Transmission Date: 20050211
  Serious: Yes (Death)
  Sender: FDA-Public Use
  Company Number: 163-20785-04060427 (0)

PATIENT
  Age: 72 Year
  Sex: Male

DRUGS (1)
  1. THALOMID [Suspect]
     Indication: MYELODYSPLASTIC SYNDROME
     Dosage: 100 GM, QHS, ORAL
     Route: 048
     Dates: start: 20040403, end: 20040528

REACTIONS (2)
  - ACUTE MYELOID LEUKAEMIA [None]
  - THERAPY NON-RESPONDER [None]
